FAERS Safety Report 11754740 (Version 2)
Quarter: 2017Q3

REPORT INFORMATION
  Report Type: Spontaneous
  Country: TN (occurrence: TN)
  Receive Date: 20151119
  Receipt Date: 20170710
  Transmission Date: 20171127
  Serious: Yes (Other)
  Sender: FDA-Public Use
  Company Number: TN-JNJFOC-20151109674

PATIENT
  Age: 26 Year
  Sex: Male

DRUGS (5)
  1. LEVOFLOXACIN. [Suspect]
     Active Substance: LEVOFLOXACIN
     Indication: UPPER RESPIRATORY TRACT INFECTION
     Dosage: FOR THE FIRST COUPLE OF DAYS
     Route: 065
     Dates: start: 201310
  2. METRONIDAZOLE. [Concomitant]
     Active Substance: METRONIDAZOLE
     Indication: UPPER RESPIRATORY TRACT INFECTION
     Dosage: FOR 5 DAYS
     Route: 065
     Dates: start: 2013
  3. BICLOTYMOL [Concomitant]
     Active Substance: BICLOTYMOL
     Indication: UPPER RESPIRATORY TRACT INFECTION
     Dosage: FOR 3 DAYS
     Route: 048
     Dates: start: 2013, end: 2013
  4. PARACETAMOL [Concomitant]
     Active Substance: ACETAMINOPHEN
     Indication: UPPER RESPIRATORY TRACT INFECTION
     Route: 065
     Dates: start: 2013
  5. LEVOFLOXACIN. [Suspect]
     Active Substance: LEVOFLOXACIN
     Indication: UPPER RESPIRATORY TRACT INFECTION
     Dosage: FOR 6 DAYS
     Route: 065
     Dates: start: 2013, end: 2013

REACTIONS (1)
  - Drug reaction with eosinophilia and systemic symptoms [Recovered/Resolved]

NARRATIVE: CASE EVENT DATE: 2013
